FAERS Safety Report 18936902 (Version 2)
Quarter: 2021Q2

REPORT INFORMATION
  Report Type: Spontaneous
  Country: BR (occurrence: BR)
  Receive Date: 20210224
  Receipt Date: 20210407
  Transmission Date: 20210717
  Serious: Yes (Other)
  Sender: FDA-Public Use
  Company Number: BR-SA-2021SA055473

PATIENT
  Sex: Female

DRUGS (6)
  1. ENBREL [Suspect]
     Active Substance: ETANERCEPT
     Dosage: 50MG
     Dates: start: 201505
  2. METHOTREXATE. [Suspect]
     Active Substance: METHOTREXATE
     Dosage: 5 MG
     Dates: start: 202101
  3. METHOTREXATE. [Suspect]
     Active Substance: METHOTREXATE
     Dosage: UNK
  4. METHOTREXATE. [Suspect]
     Active Substance: METHOTREXATE
     Dosage: UNK
     Dates: start: 2014
  5. CHLOROQUINE. [Concomitant]
     Active Substance: CHLOROQUINE
  6. ARAVA [Suspect]
     Active Substance: LEFLUNOMIDE
     Dosage: UNK

REACTIONS (22)
  - Benign breast neoplasm [Unknown]
  - Eating disorder [Unknown]
  - Palate injury [Unknown]
  - Ageusia [Unknown]
  - Rheumatoid factor increased [Unknown]
  - Inflammatory marker increased [Unknown]
  - Aptyalism [Unknown]
  - Hyperplasia [Unknown]
  - Stenosis [Unknown]
  - Alopecia [Unknown]
  - Hepatitis B [Unknown]
  - Weight decreased [Unknown]
  - Arthritis [Unknown]
  - Squamous cell carcinoma [Unknown]
  - Salivary gland disorder [Unknown]
  - Oral candidiasis [Unknown]
  - Tongue dysplasia [Unknown]
  - C-reactive protein increased [Unknown]
  - Condition aggravated [Unknown]
  - Urinary tract infection [Unknown]
  - Arthritis [Unknown]
  - Drug ineffective [Unknown]

NARRATIVE: CASE EVENT DATE: 201508
